FAERS Safety Report 4909252-2 (Version None)
Quarter: 2006Q1

REPORT INFORMATION
  Report Type: 
  Country: None (occurrence: None)
  Receive Date: 20060213
  Receipt Date: 20060203
  Transmission Date: 20060701
  Serious: Yes (Hospitalization, Other)
  Sender: FDA-Public Use
  Company Number: 2006PK00305

PATIENT
  Age: 60 Year
  Sex: Male

DRUGS (2)
  1. IRESSA [Suspect]
     Indication: GLIOBLASTOMA
     Route: 048
     Dates: start: 20051116, end: 20060208
  2. STEROIDS [Concomitant]

REACTIONS (1)
  - ABSCESS LIMB [None]
